FAERS Safety Report 17039610 (Version 3)
Quarter: 2019Q4

REPORT INFORMATION
  Report Type: Report from Study
  Country: PL (occurrence: PL)
  Receive Date: 20191115
  Receipt Date: 20191203
  Transmission Date: 20200122
  Serious: Yes (Other)
  Sender: FDA-Public Use
  Company Number: PL-EXELIXIS-XL18419025185

PATIENT
  Age: 70 Year
  Sex: Male
  Weight: 59.2 kg

DRUGS (17)
  1. ATEZOLIZUMAB. [Suspect]
     Active Substance: ATEZOLIZUMAB
     Indication: HEPATOCELLULAR CARCINOMA
     Dosage: 1200 MG, Q3WEEKS
     Route: 042
     Dates: start: 20190731
  2. CLEXANE [Concomitant]
     Active Substance: ENOXAPARIN SODIUM
  3. LAPIXEN [Concomitant]
  4. METAFEN [Concomitant]
  5. OMNIC [Concomitant]
     Active Substance: TAMSULOSIN HYDROCHLORIDE
  6. UREA CREAM WITH LACTIC ACID [Concomitant]
  7. MICRODACYN [Concomitant]
  8. AMANTIX [Concomitant]
  9. PARACETAMOL [Concomitant]
     Active Substance: ACETAMINOPHEN
  10. OXYDOLOR [Concomitant]
  11. XL184 [Suspect]
     Active Substance: CABOZANTINIB
     Indication: HEPATOCELLULAR CARCINOMA
     Dosage: 40 MG, QD
     Route: 048
     Dates: start: 20190731
  12. XL184 [Suspect]
     Active Substance: CABOZANTINIB
     Dosage: 20 MG, QD
     Route: 048
  13. ALLEVYN [Concomitant]
  14. STOPERAN [Concomitant]
  15. LYRICA [Concomitant]
     Active Substance: PREGABALIN
  16. POLPIX [Concomitant]
  17. ADVANTAN [Concomitant]
     Active Substance: METHYLPREDNISOLONE ACEPONATE

REACTIONS (1)
  - Colitis [Not Recovered/Not Resolved]

NARRATIVE: CASE EVENT DATE: 20191031
